FAERS Safety Report 8777358 (Version 2)
Quarter: 2012Q4

REPORT INFORMATION
  Report Type: 
  Country: US (occurrence: US)
  Receive Date: 20120911
  Receipt Date: 20120928
  Transmission Date: 20130627
  Serious: Yes (Other)
  Sender: FDA-Public Use
  Company Number: US-PFIZER INC-2012221150

PATIENT
  Age: 48 Year
  Sex: Female

DRUGS (2)
  1. CELEBREX [Suspect]
     Dosage: UNK
     Dates: start: 19980906
  2. CELEBREX [Suspect]
     Dosage: strength 200 mg, one twice a day (BID)

REACTIONS (3)
  - Neoplasm malignant [Unknown]
  - Pneumonia [Unknown]
  - Hernia [Unknown]
